FAERS Safety Report 25519565 (Version 1)
Quarter: 2025Q3

REPORT INFORMATION
  Report Type: Spontaneous
  Country: CN (occurrence: CN)
  Receive Date: 20250704
  Receipt Date: 20250704
  Transmission Date: 20251020
  Serious: Yes (Life-Threatening, Hospitalization)
  Sender: MERCK SHARP & DOHME LLC
  Company Number: CN-SICHUAN KELUN- BIOTECH BIOPHARMACEUTICAL CO. LTD.-2025KB000125

PATIENT
  Age: 74 Year
  Sex: Female
  Weight: 53 kg

DRUGS (1)
  1. SACITUZUMAB TIRUMOTECAN [Suspect]
     Active Substance: SACITUZUMAB TIRUMOTECAN
     Indication: Lung neoplasm malignant
     Route: 041
     Dates: start: 20250606, end: 20250606

REACTIONS (1)
  - Myelosuppression [Recovering/Resolving]

NARRATIVE: CASE EVENT DATE: 20250615
